FAERS Safety Report 5847346-8 (Version None)
Quarter: 2008Q3

REPORT INFORMATION
  Report Type: 
  Country: None (occurrence: None)
  Receive Date: 20080815
  Receipt Date: 20080801
  Transmission Date: 20090109
  Serious: Yes (Other)
  Sender: FDA-Public Use
  Company Number: AU-GENENTECH-261978

PATIENT
  Sex: Female

DRUGS (8)
  1. TRASTUZUMAB [Suspect]
     Indication: BREAST CANCER
     Dosage: UNK MG, UNK
     Route: 042
     Dates: start: 20080410, end: 20080410
  2. TRASTUZUMAB [Suspect]
     Dosage: 210 MG, UNK
     Route: 042
     Dates: start: 20080410
  3. GEMCITABINE [Suspect]
     Indication: BREAST CANCER
     Dosage: 2033 MG, Q21D
     Route: 042
     Dates: start: 20080411, end: 20080523
  4. DOCETAXEL [Suspect]
     Indication: BREAST CANCER
     Dosage: 160 MG, UNK
     Route: 042
     Dates: start: 20080411, end: 20080523
  5. NASONEX [Concomitant]
     Indication: DRUG USE FOR UNKNOWN INDICATION
     Dates: start: 20020101, end: 20080516
  6. FEXOFENADINE HYDROCHLORIDE [Concomitant]
     Indication: DRUG USE FOR UNKNOWN INDICATION
     Dates: start: 19980101, end: 20080516
  7. CONCOMITANT DRUG [Concomitant]
     Indication: DRUG USE FOR UNKNOWN INDICATION
     Dates: start: 20080320, end: 20080516
  8. PETER MAC MOUTHWASH (SODIUM CHLORIDE, SODIUM [Concomitant]
     Indication: DRUG USE FOR UNKNOWN INDICATION

REACTIONS (1)
  - PNEUMONITIS [None]
